FAERS Safety Report 7145856-7 (Version None)
Quarter: 2010Q4

REPORT INFORMATION
  Report Type: 
  Country: None (occurrence: None)
  Receive Date: 20101208
  Receipt Date: 20101201
  Transmission Date: 20110411
  Serious: Yes (Hospitalization)
  Sender: FDA-Public Use
  Company Number: B0675047A

PATIENT
  Sex: Female
  Weight: 36 kg

DRUGS (14)
  1. VALTREX [Suspect]
     Indication: GENITAL HERPES
     Dosage: 1000MG PER DAY
     Route: 048
     Dates: start: 20100830, end: 20100912
  2. NORVASC [Concomitant]
     Indication: HYPERTENSION
     Dosage: 10MG PER DAY
     Route: 048
     Dates: end: 20100916
  3. TAKEPRON [Concomitant]
     Indication: GASTRIC ULCER
     Dosage: 15MG PER DAY
     Route: 048
  4. SODIUM BICARBONATE [Concomitant]
     Indication: METABOLIC ACIDOSIS
     Route: 048
     Dates: end: 20100914
  5. FUROSEMIDE [Concomitant]
     Indication: RENAL FAILURE
     Dosage: 20MG PER DAY
     Route: 048
     Dates: end: 20100914
  6. CARDENALIN [Concomitant]
     Indication: HYPERTENSION
     Dosage: 6MG PER DAY
     Route: 048
     Dates: end: 20100914
  7. SENNOSIDE [Concomitant]
     Route: 048
  8. ENSURE [Concomitant]
     Indication: MALNUTRITION
     Route: 048
  9. FLAGYL [Concomitant]
     Indication: PSEUDOMEMBRANOUS COLITIS
     Dosage: 1500MG PER DAY
     Route: 048
     Dates: start: 20100903, end: 20100910
  10. ARGAMATE [Concomitant]
     Dosage: 75G PER DAY
     Route: 042
     Dates: end: 20100909
  11. UNASYN [Concomitant]
     Indication: FEBRILE NEUTROPENIA
     Dosage: 3G PER DAY
     Route: 048
     Dates: start: 20100914, end: 20100917
  12. BROACT [Concomitant]
     Indication: FEBRILE NEUTROPENIA
     Dosage: 2G PER DAY
     Route: 042
     Dates: start: 20100904, end: 20100910
  13. EPOGIN [Concomitant]
  14. FIRSTCIN [Concomitant]
     Indication: FEBRILE NEUTROPENIA
     Dosage: 1G PER DAY
     Route: 042
     Dates: start: 20100820, end: 20100902

REACTIONS (7)
  - ALTERED STATE OF CONSCIOUSNESS [None]
  - BLOOD CREATININE INCREASED [None]
  - COMA [None]
  - DELIRIUM [None]
  - PYREXIA [None]
  - URINE OUTPUT DECREASED [None]
  - VOMITING [None]
